FAERS Safety Report 5244083-8 (Version None)
Quarter: 2007Q1

REPORT INFORMATION
  Report Type: 
  Country: None (occurrence: None)
  Receive Date: 20070216
  Receipt Date: 20070206
  Transmission Date: 20070707
  Serious: No
  Sender: FDA-Public Use
  Company Number: 2007JP000348

PATIENT
  Age: 90 Year
  Sex: Male

DRUGS (4)
  1. VESICARE [Suspect]
     Indication: POLLAKIURIA
     Dosage: 5 MG, UID/QD; ORAL
     Route: 048
     Dates: start: 20061222, end: 20061223
  2. MAGNESIUM OXIDE [Concomitant]
  3. HARNAL (TAMSULOSIN) ORODISPERSABLE CR TABLET [Concomitant]
  4. HI-Z (ORYZANOL) [Concomitant]

REACTIONS (2)
  - HALLUCINATION [None]
  - HALLUCINATION, VISUAL [None]
